FAERS Safety Report 6507260-1 (Version None)
Quarter: 2009Q4

REPORT INFORMATION
  Report Type: 
  Country: None (occurrence: None)
  Receive Date: 20091221
  Receipt Date: 20091215
  Transmission Date: 20100525
  Serious: Yes (Hospitalization, Other)
  Sender: FDA-Public Use
  Company Number: PHHY2009JP43026

PATIENT
  Sex: Female

DRUGS (6)
  1. VOLTAREN [Suspect]
     Indication: ARTHRALGIA
     Dosage: 25 MG PER DAY
     Route: 054
     Dates: start: 20050502, end: 20070625
  2. VOLTAREN [Suspect]
     Dosage: 75 MG PER DAY
     Route: 048
     Dates: start: 20030718, end: 20070602
  3. VOLTAREN [Suspect]
     Dosage: 75 MG PER DAY
     Route: 048
     Dates: start: 20090316
  4. MUCOSTA [Suspect]
     Indication: GASTRITIS PROPHYLAXIS
     Dosage: 300 MG/DAY
     Route: 048
     Dates: start: 20030718, end: 20070602
  5. PABRON GOLD [Suspect]
     Indication: NASOPHARYNGITIS
     Dosage: 9 DF/DAY
     Route: 048
     Dates: start: 20070625, end: 20070625
  6. MYSLEE [Concomitant]
     Indication: INSOMNIA
     Dosage: 10 MG, UNK
     Route: 048
     Dates: start: 20070118, end: 20070602

REACTIONS (15)
  - CHEILITIS [None]
  - CHILLS [None]
  - EPIDERMAL NECROSIS [None]
  - ERYTHEMA [None]
  - HERPES VIRUS INFECTION [None]
  - NASOPHARYNGITIS [None]
  - OCULAR HYPERAEMIA [None]
  - ORAL PAIN [None]
  - OROPHARYNGEAL PAIN [None]
  - PIGMENTATION DISORDER [None]
  - PYREXIA [None]
  - RASH GENERALISED [None]
  - RASH PAPULAR [None]
  - SECRETION DISCHARGE [None]
  - STEVENS-JOHNSON SYNDROME [None]
